FAERS Safety Report 4989492-7 (Version None)
Quarter: 2006Q2

REPORT INFORMATION
  Report Type: 
  Country: None (occurrence: None)
  Receive Date: 20060502
  Receipt Date: 20060111
  Transmission Date: 20061013
  Serious: Yes (Hospitalization, Other)
  Sender: FDA-Public Use
  Company Number: US-MERCK-0601USA01331

PATIENT
  Age: 70 Year
  Sex: Male
  Weight: 82 kg

DRUGS (1)
  1. VIOXX [Suspect]
     Indication: BACK PAIN
     Route: 048
     Dates: start: 20010214, end: 20040901

REACTIONS (20)
  - ABDOMINAL INFECTION [None]
  - BLOOD PRESSURE INADEQUATELY CONTROLLED [None]
  - CANDIDIASIS [None]
  - CARDIAC DISORDER [None]
  - CARDIOMYOPATHY [None]
  - CARDIOVASCULAR DISORDER [None]
  - CHOLECYSTITIS INFECTIVE [None]
  - CORONARY ARTERY DISEASE [None]
  - ENDOCARDITIS [None]
  - FUNGAL INFECTION [None]
  - HYPERLIPIDAEMIA [None]
  - HYPERTENSION [None]
  - LIVER ABSCESS [None]
  - MITRAL VALVE INCOMPETENCE [None]
  - MULTI-ORGAN DISORDER [None]
  - MYOCARDIAL INFARCTION [None]
  - ORGAN FAILURE [None]
  - PAIN [None]
  - PERITONEAL ABSCESS [None]
  - PLEURAL CALCIFICATION [None]
